FAERS Safety Report 4497144-5 (Version None)
Quarter: 2004Q4

REPORT INFORMATION
  Report Type: 
  Country: None (occurrence: None)
  Receive Date: 20041110
  Receipt Date: 20041005
  Transmission Date: 20050328
  Serious: Yes (Hospitalization, Other)
  Sender: FDA-Public Use
  Company Number: JP-ABBOTT-04P-087-0276218-00

PATIENT
  Age: 72 Year
  Sex: Male

DRUGS (2)
  1. LIPANTIL [Suspect]
     Indication: HYPERLIPIDAEMIA
     Route: 048
     Dates: start: 20021225, end: 20030207
  2. PILSICAINIDE HYDROCHLORIDE [Concomitant]
     Indication: ARRHYTHMIA SUPRAVENTRICULAR
     Dates: start: 19930101, end: 20030213

REACTIONS (7)
  - CONDITION AGGRAVATED [None]
  - DERMATITIS EXFOLIATIVE [None]
  - INTERSTITIAL LUNG DISEASE [None]
  - LYMPHOCYTE COUNT DECREASED [None]
  - PERIODONTITIS [None]
  - PITYRIASIS RUBRA PILARIS [None]
  - RASH [None]
